FAERS Safety Report 5836427-0 (Version None)
Quarter: 2008Q3

REPORT INFORMATION
  Report Type: 
  Country: None (occurrence: None)
  Receive Date: 20080807
  Receipt Date: 20080728
  Transmission Date: 20090109
  Serious: Yes (Hospitalization)
  Sender: FDA-Public Use
  Company Number: PHHY2008JP12278

PATIENT
  Sex: Female
  Weight: 54 kg

DRUGS (10)
  1. ZOMETA [Suspect]
     Indication: METASTASES TO BONE
     Dosage: 4 MG, UNK
     Route: 042
     Dates: start: 20070411, end: 20071114
  2. AREDIA [Suspect]
     Indication: METASTASES TO BONE
     Dosage: 45 MG, UNK
     Route: 042
     Dates: start: 20050525, end: 20070325
  3. HYSRON [Concomitant]
     Indication: METASTASES TO BONE
     Dosage: 400 MG, UNK
     Route: 048
  4. LASIX [Concomitant]
     Indication: HYPERTENSION
     Dosage: 10 MG, UNK
     Route: 048
  5. WARFARIN SODIUM [Concomitant]
     Indication: DEEP VEIN THROMBOSIS
     Dosage: 2 MG, UNK
     Route: 048
  6. PROCYLIN [Concomitant]
     Indication: HYPERTENSION
     Dosage: 40 MG, UNK
     Route: 048
  7. LANSOPRAZOLE [Concomitant]
     Indication: GASTRIC ULCER
     Dosage: 30 MG, UNK
     Route: 048
  8. FERROMIA [Concomitant]
     Indication: IRON DEFICIENCY ANAEMIA
     Dosage: 100 MG, UNK
     Route: 048
  9. WINTERMIN [Concomitant]
     Indication: DEPRESSION
     Dosage: 75 MG, UNK
     Route: 048
  10. LENDORMIN [Concomitant]
     Indication: DEPRESSION
     Dosage: 0.25 MG, UNK
     Route: 048

REACTIONS (7)
  - BONE LESION [None]
  - JAW FRACTURE [None]
  - OSTEOMYELITIS [None]
  - OSTEONECROSIS [None]
  - SEQUESTRECTOMY [None]
  - SWELLING [None]
  - TOOTH EXTRACTION [None]
